FAERS Safety Report 15109004 (Version 1)
Quarter: 2018Q3

REPORT INFORMATION
  Report Type: Spontaneous
  Country: IT (occurrence: IT)
  Receive Date: 20180705
  Receipt Date: 20180705
  Transmission Date: 20181010
  Serious: Yes (Hospitalization)
  Sender: FDA-Public Use
  Company Number: IT-TEVA-2018-IT-918710

PATIENT
  Age: 83 Year
  Sex: Female

DRUGS (12)
  1. BISOPROLOL HEMIFUMARATE [Suspect]
     Active Substance: BISOPROLOL FUMARATE
     Indication: HYPERTENSION
     Dosage: 2.5 MILLIGRAM DAILY;
     Route: 048
     Dates: start: 20170101, end: 20170201
  2. TRAJENTA [Concomitant]
     Active Substance: LINAGLIPTIN
  3. LANTUS [Concomitant]
     Active Substance: INSULIN GLARGINE
  4. LUVION [Concomitant]
  5. CARDIOASPIRIN [Concomitant]
     Active Substance: ASPIRIN
  6. OXYGEN. [Concomitant]
     Active Substance: OXYGEN
  7. FLUXUM [Concomitant]
     Active Substance: PARNAPARIN SODIUM
  8. LANSOX [Concomitant]
     Active Substance: LANSOPRAZOLE
  9. FUROSEMIDE. [Concomitant]
     Active Substance: FUROSEMIDE
  10. NORVASC [Concomitant]
     Active Substance: AMLODIPINE BESYLATE
  11. HUMALOG [Concomitant]
     Active Substance: INSULIN LISPRO
     Dosage: 100 U/ML, SOLUTION FOR INJECTION IN VIAL
  12. LYRICA [Concomitant]
     Active Substance: PREGABALIN

REACTIONS (5)
  - Vomiting [Unknown]
  - Bradycardia [Unknown]
  - Dyspnoea exertional [Unknown]
  - Nausea [Unknown]
  - Loss of consciousness [Unknown]

NARRATIVE: CASE EVENT DATE: 20170201
